FAERS Safety Report 9342116 (Version 1)
Quarter: 2013Q2

REPORT INFORMATION
  Report Type: Spontaneous
  Country: US (occurrence: US)
  Receive Date: 20130611
  Receipt Date: 20130611
  Transmission Date: 20140414
  Serious: Yes (Other)
  Sender: FDA-Public Use
  Company Number: US-PFIZER INC-2013172607

PATIENT
  Age: 78 Year
  Sex: Female
  Weight: 75.28 kg

DRUGS (20)
  1. REVATIO [Suspect]
     Dosage: 20 MG, 3X/DAY
  2. WARFARIN [Concomitant]
     Dosage: 5 MG, DAILY
  3. DIGOXIN [Concomitant]
     Dosage: 0.125 MG, DAILY
  4. ALPRAZOLAM [Concomitant]
     Dosage: 0.25 MG, 3X/DAY
  5. ALLOPURINOL [Concomitant]
     Dosage: 10 MG, DAILY
  6. BISACODYL [Concomitant]
     Dosage: 5 MG, 2X/DAY
  7. CELEPRA [Concomitant]
     Dosage: 20 MG, DAILY
  8. CHOLECALCIFEROL [Concomitant]
     Dosage: 2000 IU, DAILY
  9. LASIX [Concomitant]
     Dosage: 40 MG, 2X/DAY
  10. LEVEMIR [Concomitant]
     Dosage: UNK
  11. LYRICA [Concomitant]
     Dosage: 75 MG, 2X/DAY
  12. NOVOLOG [Concomitant]
     Dosage: UNK, DAILY
  13. OMEPRAZOLE [Concomitant]
     Dosage: 20 MG, DAILY
  14. COLCHICINE [Concomitant]
     Dosage: 0.6 MG, DAILY
  15. NORCO [Concomitant]
     Dosage: 7.5 MG/325 MG TWO TIMES A DAY
  16. SPIRONOLACTONE [Concomitant]
     Dosage: 50 MG, DAILY
  17. ZAROXOLYN [Concomitant]
     Dosage: UNK,DAILY
  18. LANTUS [Concomitant]
     Dosage: UNK, DAILY
  19. INSULIN [Concomitant]
     Dosage: 5 MG, 3X/DAY
  20. DIOVAN [Concomitant]
     Dosage: 80 MG, DAILY

REACTIONS (2)
  - Cardiac failure [Unknown]
  - Heart rate irregular [Unknown]
